FAERS Safety Report 9336617 (Version 3)
Quarter: 2013Q3

REPORT INFORMATION
  Report Type: Spontaneous
  Country: US (occurrence: US)
  Receive Date: 20130607
  Receipt Date: 20130827
  Transmission Date: 20140515
  Serious: Yes (Other)
  Sender: FDA-Public Use
  Company Number: US-JNJFOC-20130523005

PATIENT
  Age: 57 Year
  Sex: Female

DRUGS (9)
  1. REMICADE [Suspect]
     Indication: COLITIS ULCERATIVE
     Route: 042
     Dates: end: 20130530
  2. REMICADE [Suspect]
     Indication: COLITIS ULCERATIVE
     Dosage: DOSE 5 MG/KG
     Route: 042
     Dates: start: 20120901
  3. REMICADE [Suspect]
     Indication: COLITIS ULCERATIVE
     Route: 042
     Dates: start: 20120924
  4. PREDNISONE [Suspect]
     Indication: PRODUCT USED FOR UNKNOWN INDICATION
     Route: 065
     Dates: start: 201209
  5. SULFASALAZINE [Concomitant]
     Indication: COLITIS ULCERATIVE
     Dosage: 4 TABS TWICE A DAY
     Route: 065
     Dates: start: 20130204
  6. PRAVASTATIN SODIUM [Concomitant]
     Indication: BLOOD CHOLESTEROL
     Dosage: AT BEDTIME
     Route: 065
     Dates: start: 20130114
  7. METOPROLOL [Concomitant]
     Indication: BLOOD PRESSURE
     Route: 065
     Dates: start: 20130114
  8. OMEPRAZOLE [Concomitant]
     Indication: GASTROOESOPHAGEAL REFLUX DISEASE
     Route: 065
     Dates: start: 20110728
  9. FOLIC ACID [Concomitant]
     Route: 065
     Dates: start: 20130705

REACTIONS (1)
  - Invasive ductal breast carcinoma [Unknown]
